FAERS Safety Report 8297504-0 (Version None)
Quarter: 2012Q2

REPORT INFORMATION
  Report Type: 
  Country: None (occurrence: None)
  Receive Date: 20120419
  Receipt Date: 20120409
  Transmission Date: 20120825
  Serious: Yes (Other)
  Sender: FDA-Public Use
  Company Number: PHHY2012JP030801

PATIENT
  Age: 65 Year
  Sex: Female

DRUGS (3)
  1. EXELON [Suspect]
     Indication: DEMENTIA ALZHEIMER'S TYPE
     Dosage: 9.5 MG\24H
     Route: 062
     Dates: end: 20120404
  2. MEMANTINE HYDROCHLORIDE [Concomitant]
     Indication: DEMENTIA ALZHEIMER'S TYPE
     Dosage: 20 MG, UNK
     Route: 048
  3. GRAMALIL [Concomitant]
     Dosage: 75 MG, UNK
     Route: 048

REACTIONS (3)
  - CONVULSION [None]
  - VOMITING [None]
  - LOSS OF CONSCIOUSNESS [None]
